FAERS Safety Report 13659481 (Version 1)
Quarter: 2017Q2

REPORT INFORMATION
  Report Type: Spontaneous
  Country: DE (occurrence: DE)
  Receive Date: 20170616
  Receipt Date: 20170616
  Transmission Date: 20170830
  Serious: Yes (Other)
  Sender: FDA-Public Use
  Company Number: PHHY2017DE056467

PATIENT
  Sex: Male

DRUGS (2)
  1. TEGRETOL [Suspect]
     Active Substance: CARBAMAZEPINE
     Indication: PARTIAL SEIZURES
     Dosage: 400 MG, HALF TABLET IN THE MORNING AND TWO TABLET IN THE EVENING
     Route: 065
  2. TEGRETOL [Suspect]
     Active Substance: CARBAMAZEPINE
     Indication: GENERALISED TONIC-CLONIC SEIZURE
     Dosage: 400 MG, HALF TABLET IN THE MORNING AND TWO TABLET IN THE EVENING
     Route: 065

REACTIONS (11)
  - Seizure [Unknown]
  - Urinary incontinence [Recovered/Resolved]
  - Fall [Unknown]
  - Psychogenic seizure [Unknown]
  - Confusional state [Unknown]
  - Burning sensation [Not Recovered/Not Resolved]
  - Anal incontinence [Recovered/Resolved]
  - Incorrect dose administered [Unknown]
  - Altered state of consciousness [Unknown]
  - Loss of consciousness [Unknown]
  - Rash [Unknown]

NARRATIVE: CASE EVENT DATE: 201703
